FAERS Safety Report 13666055 (Version 1)
Quarter: 2017Q2

REPORT INFORMATION
  Report Type: Spontaneous
  Country: FR (occurrence: FR)
  Receive Date: 20170619
  Receipt Date: 20170619
  Transmission Date: 20170830
  Serious: Yes (Death)
  Sender: FDA-Public Use
  Company Number: FR-LUNDBECK-DKLU2032829

PATIENT
  Age: 22 Year
  Sex: Male

DRUGS (7)
  1. URBANYL [Suspect]
     Active Substance: CLOBAZAM
     Indication: AUTISM SPECTRUM DISORDER
     Route: 048
  2. MACROGOL [Concomitant]
     Active Substance: POLYETHYLENE GLYCOLS
     Indication: AUTISM SPECTRUM DISORDER
     Route: 065
  3. LEPTICUR [Suspect]
     Active Substance: TROPATEPINE HYDROCHLORIDE
     Indication: AUTISM SPECTRUM DISORDER
     Route: 048
  4. LOXAPAC [Suspect]
     Active Substance: LOXAPINE SUCCINATE
     Indication: AUTISM SPECTRUM DISORDER
     Route: 048
  5. NEULEPTIL [Suspect]
     Active Substance: PERICIAZINE
     Indication: AUTISM SPECTRUM DISORDER
     Route: 048
  6. VALIUM [Suspect]
     Active Substance: DIAZEPAM
     Indication: AUTISM SPECTRUM DISORDER
     Route: 048
  7. CIRCADIN [Suspect]
     Active Substance: MELATONIN
     Indication: AUTISM SPECTRUM DISORDER
     Route: 048

REACTIONS (2)
  - Cyanosis [Fatal]
  - Cardio-respiratory arrest [Fatal]

NARRATIVE: CASE EVENT DATE: 20160819
